FAERS Safety Report 16357149 (Version 1)
Quarter: 2019Q2

REPORT INFORMATION
  Report Type: Spontaneous
  Country: IT (occurrence: IT)
  Receive Date: 20190527
  Receipt Date: 20190527
  Transmission Date: 20190711
  Serious: Yes (Other)
  Sender: FDA-Public Use
  Company Number: IT-IPSEN BIOPHARMACEUTICALS, INC.-2019-08216

PATIENT

DRUGS (1)
  1. LANREOTIDE 120 MG [Suspect]
     Active Substance: LANREOTIDE
     Indication: NEUROENDOCRINE TUMOUR
     Route: 065

REACTIONS (1)
  - Diarrhoea [Unknown]
